FAERS Safety Report 19738783 (Version 1)
Quarter: 2021Q3

REPORT INFORMATION
  Report Type: Spontaneous
  Country: US (occurrence: US)
  Receive Date: 20210823
  Receipt Date: 20210823
  Transmission Date: 20211014
  Serious: No
  Sender: FDA-Public Use
  Company Number: US-BRAINTREE LABORATORIES, INC.-2020BTE03471

PATIENT
  Age: 78 Year
  Sex: Male
  Weight: 117.93 kg

DRUGS (1)
  1. GOLYTELY [Suspect]
     Active Substance: POLYETHYLENE GLYCOL 3350\POTASSIUM CHLORIDE\SODIUM BICARBONATE\SODIUM CHLORIDE\SODIUM SULFATE
     Indication: COLONOSCOPY
     Dosage: 4L
     Route: 048
     Dates: start: 20201027, end: 20201027

REACTIONS (1)
  - Somnolence [None]

NARRATIVE: CASE EVENT DATE: 20201027
